FAERS Safety Report 5315566-7 (Version None)
Quarter: 2007Q2

REPORT INFORMATION
  Report Type: 
  Country: None (occurrence: None)
  Receive Date: 20070430
  Receipt Date: 20070430
  Transmission Date: 20071010
  Serious: No
  Sender: FDA-Public Use
  Company Number: None

PATIENT
  Sex: Female
  Weight: 61.2356 kg

DRUGS (2)
  1. FLUOROURACIL [Suspect]
     Indication: NEOPLASM MALIGNANT
     Dosage: NOT SURE     IV DRIP
     Route: 041
     Dates: start: 19990701, end: 20020731
  2. LEUCOVORIN    NOT SURE [Suspect]

REACTIONS (1)
  - OSTEOPOROSIS [None]
